FAERS Safety Report 21290134 (Version 2)
Quarter: 2022Q3

REPORT INFORMATION
  Report Type: Spontaneous
  Country: CH (occurrence: CH)
  Receive Date: 20220902
  Receipt Date: 20220904
  Transmission Date: 20221027
  Serious: Yes (Other)
  Sender: FDA-Public Use
  Company Number: None

PATIENT
  Age: 8 Year
  Sex: Male

DRUGS (5)
  1. CONCERTA [Suspect]
     Active Substance: METHYLPHENIDATE HYDROCHLORIDE
     Indication: Attention deficit hyperactivity disorder
     Route: 065
     Dates: start: 202006, end: 202101
  2. CONCERTA [Suspect]
     Active Substance: METHYLPHENIDATE HYDROCHLORIDE
     Route: 065
     Dates: start: 202101, end: 202201
  3. LISDEXAMFETAMINE DIMESYLATE [Suspect]
     Active Substance: LISDEXAMFETAMINE DIMESYLATE
     Indication: Attention deficit hyperactivity disorder
     Route: 065
     Dates: start: 202201, end: 20220711
  4. METHYLPHENIDATE [Suspect]
     Active Substance: METHYLPHENIDATE
     Indication: Attention deficit hyperactivity disorder
     Route: 065
     Dates: start: 20220712
  5. MELATONIN [Concomitant]
     Active Substance: MELATONIN

REACTIONS (1)
  - Growth failure [Not Recovered/Not Resolved]

NARRATIVE: CASE EVENT DATE: 20200601
